FAERS Safety Report 6434275-4 (Version None)
Quarter: 2009Q4

REPORT INFORMATION
  Report Type: 
  Country: None (occurrence: None)
  Receive Date: 20091110
  Receipt Date: 20091030
  Transmission Date: 20100525
  Serious: Yes (Other)
  Sender: FDA-Public Use
  Company Number: RS-BAYER-200810032GPV

PATIENT
  Age: 17 Year
  Sex: Male

DRUGS (1)
  1. ULTRAVIST 300 [Suspect]
     Indication: ANGIOGRAM CEREBRAL
     Route: 013
     Dates: start: 20071101, end: 20071101

REACTIONS (5)
  - BLINDNESS TRANSIENT [None]
  - COLOUR BLINDNESS [None]
  - CONVULSION [None]
  - INFUSION RELATED REACTION [None]
  - VISION BLURRED [None]
